FAERS Safety Report 15003892 (Version 1)
Quarter: 2018Q2

REPORT INFORMATION
  Report Type: Report from Study
  Country: CA (occurrence: CA)
  Receive Date: 20180613
  Receipt Date: 20180613
  Transmission Date: 20180711
  Serious: Yes (Other)
  Sender: FDA-Public Use
  Company Number: CA-AMGEN-CANSL2018078378

PATIENT
  Age: 88 Year
  Sex: Male

DRUGS (2)
  1. ENBREL [Suspect]
     Active Substance: ETANERCEPT
     Indication: PRODUCT USED FOR UNKNOWN INDICATION
     Dosage: 50 MG, QWK
     Route: 065
  2. HYDROXYCHLOROQUINE [Concomitant]
     Active Substance: HYDROXYCHLOROQUINE
     Dosage: 200 MG, QD
     Route: 048

REACTIONS (9)
  - Incontinence [Unknown]
  - Musculoskeletal stiffness [Unknown]
  - Dementia [Recovering/Resolving]
  - Mobility decreased [Unknown]
  - Spinal disorder [Unknown]
  - Arthralgia [Unknown]
  - Inflammation [Unknown]
  - Neoplasm malignant [Unknown]
  - Abdominal operation [Unknown]
